FAERS Safety Report 7069821-3 (Version None)
Quarter: 2010Q4

REPORT INFORMATION
  Report Type: 
  Country: None (occurrence: None)
  Receive Date: 20101028
  Receipt Date: 20100610
  Transmission Date: 20110411
  Serious: No
  Sender: FDA-Public Use
  Company Number: US-WYE-H15759610

PATIENT
  Age: 72 Year
  Sex: Female
  Weight: 70.37 kg

DRUGS (2)
  1. ADVIL [Suspect]
     Indication: ARTHRALGIA
     Dosage: 1-2 TABLETS AS NEEDED
     Route: 048
     Dates: end: 20091201
  2. ESTROGEN NOS [Concomitant]

REACTIONS (1)
  - HEART RATE IRREGULAR [None]
